FAERS Safety Report 4365561-X (Version None)
Quarter: 2004Q2

REPORT INFORMATION
  Report Type: 
  Country: None (occurrence: None)
  Receive Date: 20040526
  Receipt Date: 20040517
  Transmission Date: 20050107
  Serious: Yes (Hospitalization)
  Sender: FDA-Public Use
  Company Number: BE-BRISTOL-MYERS SQUIBB COMPANY-12588125

PATIENT
  Age: 71 Year
  Sex: Male

DRUGS (14)
  1. PRAVASTATIN SODIUM [Suspect]
     Indication: HYPERCHOLESTEROLAEMIA
     Dosage: THERAPY INTERRUPTED ON 05-FEB-2004, AND RESTARTED ON 09-MAR-2004.
     Route: 048
  2. CORDARONE [Suspect]
  3. BURINEX [Concomitant]
  4. CARDIOASPIRIN [Concomitant]
  5. COVERSYL [Concomitant]
  6. KREDEX [Concomitant]
  7. LASIX [Concomitant]
  8. DAKAR [Concomitant]
  9. PLAVIX [Concomitant]
  10. PROPYLTHIOURACIL [Concomitant]
  11. LYSOMUCIL [Concomitant]
  12. NITRODERM [Concomitant]
     Dosage: TTS PATCH
     Route: 062
  13. DUOVENT [Concomitant]
     Dosage: AEROSOL
  14. FLIXOTIDE [Concomitant]

REACTIONS (1)
  - PULMONARY FIBROSIS [None]
